FAERS Safety Report 7518106-7 (Version None)
Quarter: 2011Q2

REPORT INFORMATION
  Report Type: 
  Country: None (occurrence: None)
  Receive Date: 20110523
  Receipt Date: 20110512
  Transmission Date: 20111010
  Serious: Yes (Death, Other)
  Sender: FDA-Public Use
  Company Number: 2010AC000063

PATIENT
  Age: 81 Year
  Sex: Female

DRUGS (27)
  1. PLAVIX [Concomitant]
  2. SINGULAIR [Concomitant]
  3. LIDODERM [Concomitant]
  4. TYLENOL-500 [Concomitant]
  5. PREDNISONE [Concomitant]
  6. COREG [Concomitant]
  7. DIGOXIN [Suspect]
     Indication: CARDIAC FAILURE
     Dosage: 0.125 MG, QD, PO
     Route: 048
     Dates: start: 20051003, end: 20051204
  8. LEVAQUIN [Concomitant]
  9. IPRATROPIUM BROMIDE [Concomitant]
  10. NITROGLYCERIN [Concomitant]
  11. ALBUTEROL SULFATE AUTOHALER [Concomitant]
  12. BENZOAGTE [Concomitant]
  13. FERROUS SULFATE TAB [Concomitant]
  14. DIGOXIN [Suspect]
     Dosage: 0.125 MG, QD, PO
     Route: 048
     Dates: start: 20060313, end: 20070301
  15. NORVASC [Concomitant]
  16. NAPROXEN [Concomitant]
  17. PROTONIX [Concomitant]
  18. VIAGRA [Concomitant]
  19. FUROSEMIDE [Concomitant]
  20. SUCRALFATE [Concomitant]
  21. CIPROFLOXACIN [Concomitant]
  22. NYSTATIN [Concomitant]
  23. AZITHROMYCIN [Concomitant]
  24. LISINOPRIL [Concomitant]
  25. PREVACID [Concomitant]
  26. TUSSINZONE [Concomitant]
  27. THEOPHYLLINE [Concomitant]

REACTIONS (34)
  - ANXIETY [None]
  - TRICUSPID VALVE INCOMPETENCE [None]
  - PULMONARY OEDEMA [None]
  - BRADYCARDIA [None]
  - RENAL CYST [None]
  - ANAEMIA [None]
  - HYPERKALAEMIA [None]
  - BEDRIDDEN [None]
  - SYNCOPE [None]
  - TOXICITY TO VARIOUS AGENTS [None]
  - PULMONARY FIBROSIS [None]
  - HYPONATRAEMIA [None]
  - LUNG INFILTRATION [None]
  - MULTI-ORGAN FAILURE [None]
  - PYREXIA [None]
  - BRONCHITIS [None]
  - CHRONIC OBSTRUCTIVE PULMONARY DISEASE [None]
  - CONDITION AGGRAVATED [None]
  - ACUTE RESPIRATORY FAILURE [None]
  - HYPOMAGNESAEMIA [None]
  - LOWER RESPIRATORY TRACT INFECTION [None]
  - LEFT VENTRICULAR HYPERTROPHY [None]
  - MULTIPLE INJURIES [None]
  - AORTIC VALVE SCLEROSIS [None]
  - CARDIOMEGALY [None]
  - PNEUMONIA [None]
  - FLUID OVERLOAD [None]
  - URINARY TRACT INFECTION [None]
  - AZOTAEMIA [None]
  - ACUTE PRERENAL FAILURE [None]
  - PULMONARY HYPERTENSION [None]
  - MITRAL VALVE INCOMPETENCE [None]
  - PERICARDIAL EFFUSION [None]
  - ELECTROLYTE IMBALANCE [None]
